FAERS Safety Report 19461598 (Version 28)
Quarter: 2025Q2

REPORT INFORMATION
  Report Type: Spontaneous
  Country: GB (occurrence: GB)
  Receive Date: 20210625
  Receipt Date: 20250617
  Transmission Date: 20250717
  Serious: Yes (Other)
  Sender: MYLAN
  Company Number: GB-EMA-DD-20181127-N9C8J7-154206

PATIENT
  Age: 29 Year
  Sex: Male

DRUGS (106)
  1. VALPROATE [Suspect]
     Active Substance: VALPROIC ACID
     Indication: Product used for unknown indication
  2. VALPROATE [Suspect]
     Active Substance: VALPROIC ACID
  3. VALPROATE [Suspect]
     Active Substance: VALPROIC ACID
  4. TRAZODONE [Suspect]
     Active Substance: TRAZODONE HYDROCHLORIDE
     Indication: Product used for unknown indication
  5. TRAZODONE [Suspect]
     Active Substance: TRAZODONE HYDROCHLORIDE
  6. DOSULEPIN HYDROCHLORIDE [Suspect]
     Active Substance: DOTHIEPIN HYDROCHLORIDE
     Indication: Product used for unknown indication
  7. DOSULEPIN HYDROCHLORIDE [Suspect]
     Active Substance: DOTHIEPIN HYDROCHLORIDE
  8. PREGABALIN [Suspect]
     Active Substance: PREGABALIN
     Indication: Product used for unknown indication
  9. PREGABALIN [Suspect]
     Active Substance: PREGABALIN
  10. PREGABALIN [Suspect]
     Active Substance: PREGABALIN
  11. PREGABALIN [Suspect]
     Active Substance: PREGABALIN
  12. SERTRALINE [Suspect]
     Active Substance: SERTRALINE HYDROCHLORIDE
     Indication: Product used for unknown indication
  13. SERTRALINE [Suspect]
     Active Substance: SERTRALINE HYDROCHLORIDE
  14. IBUPROFEN [Suspect]
     Active Substance: IBUPROFEN
     Indication: Product used for unknown indication
  15. IBUPROFEN [Suspect]
     Active Substance: IBUPROFEN
  16. THIAMINE [Suspect]
     Active Substance: THIAMINE
     Indication: Product used for unknown indication
  17. THIAMINE [Suspect]
     Active Substance: THIAMINE
  18. THIAMINE [Suspect]
     Active Substance: THIAMINE
  19. ACETAMINOPHEN [Suspect]
     Active Substance: ACETAMINOPHEN
     Indication: Product used for unknown indication
  20. ACETAMINOPHEN [Suspect]
     Active Substance: ACETAMINOPHEN
  21. ACETAMINOPHEN [Suspect]
     Active Substance: ACETAMINOPHEN
  22. ACETAMINOPHEN [Suspect]
     Active Substance: ACETAMINOPHEN
  23. ACETAMINOPHEN [Suspect]
     Active Substance: ACETAMINOPHEN
  24. ACETAMINOPHEN [Suspect]
     Active Substance: ACETAMINOPHEN
  25. TOPIRAMATE [Suspect]
     Active Substance: TOPIRAMATE
     Indication: Product used for unknown indication
  26. TOPIRAMATE [Suspect]
     Active Substance: TOPIRAMATE
  27. TOPIRAMATE [Suspect]
     Active Substance: TOPIRAMATE
  28. TOPIRAMATE [Suspect]
     Active Substance: TOPIRAMATE
  29. VALPROIC ACID [Suspect]
     Active Substance: VALPROIC ACID
     Indication: Product used for unknown indication
  30. VALPROIC ACID [Suspect]
     Active Substance: VALPROIC ACID
  31. VALPROIC ACID [Suspect]
     Active Substance: VALPROIC ACID
  32. VALPROIC ACID [Suspect]
     Active Substance: VALPROIC ACID
     Dosage: UNK, QD
  33. AMITRIPTYLINE [Suspect]
     Active Substance: AMITRIPTYLINE
     Indication: Product used for unknown indication
  34. AMITRIPTYLINE [Suspect]
     Active Substance: AMITRIPTYLINE
     Dates: start: 2017, end: 2018
  35. AMITRIPTYLINE [Suspect]
     Active Substance: AMITRIPTYLINE
  36. AMITRIPTYLINE [Suspect]
     Active Substance: AMITRIPTYLINE
  37. AMITRIPTYLINE [Suspect]
     Active Substance: AMITRIPTYLINE
  38. AMITRIPTYLINE [Suspect]
     Active Substance: AMITRIPTYLINE
     Dates: start: 2017, end: 2018
  39. AMITRIPTYLINE [Suspect]
     Active Substance: AMITRIPTYLINE
  40. AMITRIPTYLINE [Suspect]
     Active Substance: AMITRIPTYLINE
     Dosage: UNK, QD
  41. AMITRIPTYLINE [Suspect]
     Active Substance: AMITRIPTYLINE
     Dates: start: 2017, end: 2017
  42. AMITRIPTYLINE [Suspect]
     Active Substance: AMITRIPTYLINE
     Dates: start: 2017, end: 2018
  43. BOTOX [Suspect]
     Active Substance: ONABOTULINUMTOXINA
     Indication: Product used for unknown indication
     Dates: start: 2017, end: 2018
  44. BOTOX [Suspect]
     Active Substance: ONABOTULINUMTOXINA
  45. BOTOX [Suspect]
     Active Substance: ONABOTULINUMTOXINA
  46. BOTOX [Suspect]
     Active Substance: ONABOTULINUMTOXINA
  47. BOTOX [Suspect]
     Active Substance: ONABOTULINUMTOXINA
     Dates: start: 2017, end: 2018
  48. BOTOX [Suspect]
     Active Substance: ONABOTULINUMTOXINA
  49. BOTOX [Suspect]
     Active Substance: ONABOTULINUMTOXINA
  50. BOTOX [Suspect]
     Active Substance: ONABOTULINUMTOXINA
     Dosage: 1 MILLIGRAM, QD (SINGLE)
     Dates: start: 2018, end: 2018
  51. BOTOX [Suspect]
     Active Substance: ONABOTULINUMTOXINA
  52. BOTOX [Suspect]
     Active Substance: ONABOTULINUMTOXINA
  53. BOTOX [Suspect]
     Active Substance: ONABOTULINUMTOXINA
  54. BOTOX [Suspect]
     Active Substance: ONABOTULINUMTOXINA
     Dates: start: 2017, end: 2018
  55. BOTOX [Suspect]
     Active Substance: ONABOTULINUMTOXINA
     Dates: start: 2018, end: 2018
  56. BOTOX [Suspect]
     Active Substance: ONABOTULINUMTOXINA
  57. BOTOX [Suspect]
     Active Substance: ONABOTULINUMTOXINA
  58. BOTOX [Suspect]
     Active Substance: ONABOTULINUMTOXINA
  59. TRAZODONE HYDROCHLORIDE [Suspect]
     Active Substance: TRAZODONE HYDROCHLORIDE
     Indication: Product used for unknown indication
     Dosage: UNK, QD
  60. TRAZODONE HYDROCHLORIDE [Suspect]
     Active Substance: TRAZODONE HYDROCHLORIDE
  61. TRAZODONE HYDROCHLORIDE [Suspect]
     Active Substance: TRAZODONE HYDROCHLORIDE
  62. TRAZODONE HYDROCHLORIDE [Suspect]
     Active Substance: TRAZODONE HYDROCHLORIDE
     Dosage: UNK, QD ENDOTRACHEOPULMONARY INSTILLATION, SOLUTION
  63. TRAZODONE HYDROCHLORIDE [Suspect]
     Active Substance: TRAZODONE HYDROCHLORIDE
  64. TRAZODONE HYDROCHLORIDE [Suspect]
     Active Substance: TRAZODONE HYDROCHLORIDE
  65. TRAZODONE HYDROCHLORIDE [Suspect]
     Active Substance: TRAZODONE HYDROCHLORIDE
  66. IBUPROFEN [Suspect]
     Active Substance: IBUPROFEN
     Indication: Product used for unknown indication
  67. IBUPROFEN [Suspect]
     Active Substance: IBUPROFEN
  68. IBUPROFEN [Suspect]
     Active Substance: IBUPROFEN
  69. IBUPROFEN [Suspect]
     Active Substance: IBUPROFEN
  70. IBUPROFEN [Suspect]
     Active Substance: IBUPROFEN
  71. PROTHIADEN [Suspect]
     Active Substance: DOTHIEPIN HYDROCHLORIDE
     Indication: Product used for unknown indication
  72. PROTHIADEN [Suspect]
     Active Substance: DOTHIEPIN HYDROCHLORIDE
  73. PROTHIADEN [Suspect]
     Active Substance: DOTHIEPIN HYDROCHLORIDE
  74. PROTHIADEN [Suspect]
     Active Substance: DOTHIEPIN HYDROCHLORIDE
  75. DICLOFENAC SODIUM [Suspect]
     Active Substance: DICLOFENAC SODIUM
     Indication: Product used for unknown indication
  76. DICLOFENAC SODIUM [Suspect]
     Active Substance: DICLOFENAC SODIUM
     Indication: Product used for unknown indication
  77. PYRIDOXINE HYDROCHLORIDE\THIAMINE HYDROCHLORIDE [Suspect]
     Active Substance: PYRIDOXINE HYDROCHLORIDE\THIAMINE HYDROCHLORIDE
     Indication: Product used for unknown indication
  78. PYRIDOXINE HYDROCHLORIDE\THIAMINE HYDROCHLORIDE [Suspect]
     Active Substance: PYRIDOXINE HYDROCHLORIDE\THIAMINE HYDROCHLORIDE
  79. PYRIDOXINE HYDROCHLORIDE\THIAMINE HYDROCHLORIDE [Suspect]
     Active Substance: PYRIDOXINE HYDROCHLORIDE\THIAMINE HYDROCHLORIDE
  80. DICLOFENAC SODIUM [Suspect]
     Active Substance: DICLOFENAC SODIUM
     Indication: Product used for unknown indication
  81. DICLOFENAC SODIUM [Suspect]
     Active Substance: DICLOFENAC SODIUM
  82. DICLOFENAC SODIUM [Suspect]
     Active Substance: DICLOFENAC SODIUM
  83. CYANOCOBALAMIN [Suspect]
     Active Substance: CYANOCOBALAMIN
     Indication: Product used for unknown indication
  84. CYANOCOBALAMIN [Suspect]
     Active Substance: CYANOCOBALAMIN
  85. CYANOCOBALAMIN [Suspect]
     Active Substance: CYANOCOBALAMIN
  86. VITAMIN B [Suspect]
     Active Substance: VITAMIN B
     Indication: Product used for unknown indication
  87. VITAMIN B [Suspect]
     Active Substance: VITAMIN B
  88. DOSULEPIN HYDROCHLORIDE [Suspect]
     Active Substance: DOTHIEPIN HYDROCHLORIDE
     Indication: Product used for unknown indication
  89. DOSULEPIN HYDROCHLORIDE [Suspect]
     Active Substance: DOTHIEPIN HYDROCHLORIDE
  90. DOSULEPIN HYDROCHLORIDE [Suspect]
     Active Substance: DOTHIEPIN HYDROCHLORIDE
  91. PYRIDOXINE HYDROCHLORIDE [Suspect]
     Active Substance: PYRIDOXINE HYDROCHLORIDE
     Indication: Product used for unknown indication
  92. PYRIDOXINE HYDROCHLORIDE [Suspect]
     Active Substance: PYRIDOXINE HYDROCHLORIDE
  93. PYRIDOXINE HYDROCHLORIDE [Suspect]
     Active Substance: PYRIDOXINE HYDROCHLORIDE
  94. TOPAMAX [Suspect]
     Active Substance: TOPIRAMATE
     Indication: Product used for unknown indication
  95. TOPAMAX [Suspect]
     Active Substance: TOPIRAMATE
  96. TOPAMAX [Suspect]
     Active Substance: TOPIRAMATE
  97. IBUPROFEN [Suspect]
     Active Substance: IBUPROFEN
     Indication: Product used for unknown indication
  98. IBUPROFEN [Suspect]
     Active Substance: IBUPROFEN
  99. IBUPROFEN [Suspect]
     Active Substance: IBUPROFEN
  100. DOTHIEPIN [Suspect]
     Active Substance: DOTHIEPIN\DOTHIEPIN HYDROCHLORIDE
     Indication: Product used for unknown indication
  101. DOTHIEPIN [Suspect]
     Active Substance: DOTHIEPIN\DOTHIEPIN HYDROCHLORIDE
  102. DOTHIEPIN [Suspect]
     Active Substance: DOTHIEPIN\DOTHIEPIN HYDROCHLORIDE
  103. DOTHIEPIN [Suspect]
     Active Substance: DOTHIEPIN\DOTHIEPIN HYDROCHLORIDE
  104. VALPROATE MAGNESIUM [Suspect]
     Active Substance: VALPROATE MAGNESIUM
     Indication: Product used for unknown indication
  105. THIAMINE HYDROCHLORIDE [Suspect]
     Active Substance: THIAMINE HYDROCHLORIDE
     Indication: Product used for unknown indication
  106. DOTHIEPIN HYDROCHLORIDE [Suspect]
     Active Substance: DOTHIEPIN HYDROCHLORIDE
     Indication: Product used for unknown indication

REACTIONS (6)
  - Head discomfort [Unknown]
  - Migraine [Unknown]
  - Neck pain [Unknown]
  - Pain [Unknown]
  - Back pain [Unknown]
  - Headache [Unknown]
